FAERS Safety Report 23513967 (Version 9)
Quarter: 2025Q4

REPORT INFORMATION
  Report Type: Report from Study
  Country: US (occurrence: US)
  Receive Date: 20240212
  Receipt Date: 20251217
  Transmission Date: 20260118
  Serious: No
  Sender: PFIZER
  Company Number: US-PFIZER INC-202400024867

PATIENT
  Age: 5 Year
  Sex: Female
  Weight: 15.873 kg

DRUGS (1)
  1. GENOTROPIN [Suspect]
     Active Substance: SOMATROPIN
     Indication: Growth hormone deficiency
     Dosage: 0.8 MG, ONCE DAILY
     Route: 030

REACTIONS (4)
  - Wrong technique in device usage process [Unknown]
  - Device use error [Unknown]
  - Needle issue [Unknown]
  - Incorrect route of product administration [Unknown]
